FAERS Safety Report 16407379 (Version 1)
Quarter: 2019Q2

REPORT INFORMATION
  Report Type: Spontaneous
  Country: US (occurrence: US)
  Receive Date: 20190608
  Receipt Date: 20190608
  Transmission Date: 20190711
  Serious: Yes (Other)
  Sender: FDA-Public Use
  Company Number: US-AMGEN-USASP2019088187

PATIENT
  Age: 79 Year
  Sex: Female

DRUGS (2)
  1. PROLIA [Suspect]
     Active Substance: DENOSUMAB
     Indication: OSTEOPOROSIS POSTMENOPAUSAL
     Dosage: UNK UNK, Q6MO
     Route: 065
  2. PROLIA [Suspect]
     Active Substance: DENOSUMAB
     Indication: OSTEOGENESIS IMPERFECTA

REACTIONS (3)
  - Supraventricular tachycardia [Recovering/Resolving]
  - Ventricular extrasystoles [Recovering/Resolving]
  - Supraventricular extrasystoles [Recovering/Resolving]

NARRATIVE: CASE EVENT DATE: 201905
